FAERS Safety Report 5308748-1 (Version None)
Quarter: 2007Q2

REPORT INFORMATION
  Report Type: 
  Country: None (occurrence: None)
  Receive Date: 20070426
  Receipt Date: 20070425
  Transmission Date: 20071010
  Serious: Yes (Other)
  Sender: FDA-Public Use
  Company Number: 200711888EU

PATIENT
  Age: 78 Year
  Sex: Male

DRUGS (2)
  1. NICODERM [Suspect]
     Indication: SMOKING CESSATION THERAPY
     Dosage: 7MG PER DAY
     Route: 062
     Dates: start: 20070201
  2. ANTIHYPERTENSIVE [Concomitant]
     Indication: HYPERTENSION

REACTIONS (1)
  - LARYNGEAL CANCER [None]
